FAERS Safety Report 9642825 (Version 1)
Quarter: 2013Q4

REPORT INFORMATION
  Report Type: Spontaneous
  Country: JP (occurrence: JP)
  Receive Date: 20131024
  Receipt Date: 20131024
  Transmission Date: 20140711
  Serious: Yes (Hospitalization)
  Sender: FDA-Public Use
  Company Number: JP-TAKEDA-2013TEU001530

PATIENT
  Sex: 0

DRUGS (5)
  1. TACHOSIL [Suspect]
     Indication: PROPHYLAXIS
     Dosage: 1SHEET OF REGULAR SIZE
     Dates: start: 20130319
  2. CEFAPICOL [Concomitant]
     Indication: PROPHYLAXIS
     Dosage: 1 G, BID
     Route: 042
     Dates: start: 20130319, end: 20130320
  3. PARIET [Concomitant]
     Indication: HEPATIC CANCER METASTATIC
     Dosage: 10 MG, QD
     Route: 048
     Dates: start: 20130322
  4. LETRAC [Concomitant]
     Indication: HEPATIC CANCER METASTATIC
     Dosage: 60 MG, TID
     Route: 048
     Dates: start: 20130321
  5. MUCOSTA [Concomitant]
     Indication: HEPATIC CANCER METASTATIC
     Dosage: 100 MG, TID
     Route: 048
     Dates: start: 20130321

REACTIONS (1)
  - Abdominal abscess [Recovering/Resolving]
